FAERS Safety Report 8046980-7 (Version None)
Quarter: 2012Q1

REPORT INFORMATION
  Report Type: 
  Country: None (occurrence: None)
  Receive Date: 20120116
  Receipt Date: 20120106
  Transmission Date: 20120608
  Serious: Yes (Hospitalization, Other)
  Sender: FDA-Public Use
  Company Number: US-BAYER-2011-036584

PATIENT
  Age: 29 Year
  Sex: Female
  Weight: 86.168 kg

DRUGS (7)
  1. VITAMIN B COMPLEX CAP [Concomitant]
     Indication: WEIGHT DECREASED
     Dosage: INJECTION WEEKLY
     Dates: start: 20090523
  2. YAZ [Suspect]
     Indication: MENSTRUAL CYCLE MANAGEMENT
     Dosage: UNK
     Dates: start: 20090430, end: 20090526
  3. PHENTERMINE [Concomitant]
     Indication: WEIGHT DECREASED
     Dosage: 37.5 MG, QD (ONCE DAILY)
     Route: 048
     Dates: start: 20090501
  4. MEDROXYPROGESTERONE [Concomitant]
     Dosage: 10 MG, UNK
     Route: 048
  5. HUMAN GROWTH HORMONE [Concomitant]
     Indication: WEIGHT DECREASED
     Dosage: DAILY
     Dates: start: 20090501
  6. ACETAMINOPHEN [Concomitant]
     Indication: PAIN
     Dosage: UNK UNK, PRN
     Route: 048
     Dates: start: 20090528
  7. METFORMIN HCL [Concomitant]
     Indication: DIABETES MELLITUS
     Dosage: 850 MG, BID (TWICE DAILY)
     Route: 048
     Dates: start: 20040430, end: 20080528

REACTIONS (12)
  - VISION BLURRED [None]
  - VOMITING [None]
  - HEADACHE [None]
  - AMNESIA [None]
  - INJURY [None]
  - ANXIETY [None]
  - MIGRAINE [None]
  - INTRACRANIAL VENOUS SINUS THROMBOSIS [None]
  - PAIN [None]
  - CEREBROVASCULAR ACCIDENT [None]
  - JUGULAR VEIN THROMBOSIS [None]
  - EMOTIONAL DISTRESS [None]
